FAERS Safety Report 7769302-5 (Version None)
Quarter: 2011Q3

REPORT INFORMATION
  Report Type: 
  Country: None (occurrence: None)
  Receive Date: 20110922
  Receipt Date: 20110912
  Transmission Date: 20111222
  Serious: No
  Sender: FDA-Public Use
  Company Number: US-B.I. PHARMACEUTICALS,INC./RIDGEFIELD-2011-BP-15163BP

PATIENT
  Sex: Male

DRUGS (5)
  1. PRADAXA [Suspect]
     Indication: ATRIAL FIBRILLATION
     Dosage: 300 MG
     Route: 048
     Dates: start: 20110501
  2. DIGESTIVE ENZYMES [Concomitant]
     Indication: ABDOMINAL DISTENSION
     Dates: start: 20090101
  3. PROBIOTICS [Concomitant]
     Indication: FLATULENCE
     Dates: start: 20090101
  4. ASPIRIN [Concomitant]
     Dosage: 81 MG
  5. PROBIOTICS [Concomitant]
     Indication: ABDOMINAL DISTENSION

REACTIONS (3)
  - ABDOMINAL DISTENSION [None]
  - FLATULENCE [None]
  - BLOOD URINE PRESENT [None]
